FAERS Safety Report 9904320 (Version 2)
Quarter: 2014Q2

REPORT INFORMATION
  Report Type: Spontaneous
  Country: US (occurrence: US)
  Receive Date: 20140218
  Receipt Date: 20140505
  Transmission Date: 20141212
  Serious: No
  Sender: FDA-Public Use
  Company Number: US-PFIZER INC-2014041390

PATIENT
  Age: 73 Year
  Sex: Male
  Weight: 81.63 kg

DRUGS (3)
  1. ATORVASTATIN CALCIUM [Suspect]
     Indication: BLOOD CHOLESTEROL INCREASED
     Dosage: 20 MG, UNK (WHITE FOOTBALL SHAPED/ ^20^ ONE SIDE / ^PD156^ OTHER SIDE)
     Route: 048
     Dates: start: 201305
  2. ATORVASTATIN [Suspect]
     Indication: BLOOD CHOLESTEROL INCREASED
     Dosage: UNK
     Dates: start: 201212, end: 201305
  3. ASPRIN [Concomitant]
     Indication: STENT PLACEMENT
     Dosage: 325 MG, DAILY
     Route: 048
     Dates: start: 2000

REACTIONS (1)
  - Constipation [Not Recovered/Not Resolved]
